FAERS Safety Report 6985937-1 (Version None)
Quarter: 2010Q3

REPORT INFORMATION
  Report Type: 
  Country: None (occurrence: None)
  Receive Date: 20100915
  Receipt Date: 20100903
  Transmission Date: 20110219
  Serious: Yes (Hospitalization, Other)
  Sender: FDA-Public Use
  Company Number: US-ELI_LILLY_AND_COMPANY-US201009001473

PATIENT
  Sex: Female

DRUGS (5)
  1. HUMALOG [Suspect]
     Indication: DIABETES MELLITUS
     Dosage: UNK, AS NEEDED
  2. HUMULIN N [Suspect]
     Indication: DIABETES MELLITUS
     Dosage: 6 U, EACH MORNING
  3. HUMULIN N [Suspect]
     Dosage: 2 U, EACH EVENING
  4. HUMULIN N [Suspect]
     Dosage: 10 U, EACH MORNING
     Dates: start: 20100823
  5. HUMULIN N [Suspect]
     Dosage: 5 U, EACH EVENING
     Dates: start: 20100823

REACTIONS (5)
  - BLOOD GLUCOSE INCREASED [None]
  - FALL [None]
  - HAEMORRHAGE [None]
  - HYPOGLYCAEMIC UNCONSCIOUSNESS [None]
  - UPPER LIMB FRACTURE [None]
